FAERS Safety Report 5236854-9 (Version None)
Quarter: 2007Q1

REPORT INFORMATION
  Report Type: 
  Country: None (occurrence: None)
  Receive Date: 20070213
  Receipt Date: 20070202
  Transmission Date: 20070707
  Serious: Yes (Hospitalization)
  Sender: FDA-Public Use
  Company Number: US-JNJFOC-20070201060

PATIENT
  Sex: Male
  Weight: 80.74 kg

DRUGS (4)
  1. FENTANYL TRANSDERMAL SYSTEM [Suspect]
     Indication: PAIN
     Route: 062
  2. PREVACID [Concomitant]
     Indication: GASTROINTESTINAL DISORDER
     Route: 048
  3. VANCOMYCIN HYDROCHLORIDE [Concomitant]
     Indication: INFECTION
     Route: 042
  4. IRON [Concomitant]
     Indication: ANAEMIA
     Route: 042

REACTIONS (3)
  - ANAEMIA [None]
  - OSTEOMYELITIS [None]
  - SEPSIS [None]
